FAERS Safety Report 9876989 (Version 1)
Quarter: 2014Q1

REPORT INFORMATION
  Report Type: Spontaneous
  Country: IN (occurrence: IN)
  Receive Date: 20140206
  Receipt Date: 20140206
  Transmission Date: 20141002
  Serious: Yes (Other)
  Sender: FDA-Public Use
  Company Number: IN-ACCORD-021689

PATIENT
  Age: 30 Year
  Sex: Male

DRUGS (4)
  1. LITHIUM [Concomitant]
     Indication: MANIA
  2. TRIHEXYPHENIDYL [Concomitant]
     Indication: MANIA
  3. HALOPERIDOL [Concomitant]
     Indication: MANIA
  4. QUETIAPINE [Suspect]
     Indication: MANIA
     Dosage: AT NIGHT. ?PATIENT HAD CONTINUED QUETIAPINE 2 G NIGHTLY FOR THE NEXT 2 MONTHS.

REACTIONS (3)
  - Therapy change [Unknown]
  - Aspartate aminotransferase increased [Recovered/Resolved]
  - Alanine aminotransferase increased [Recovered/Resolved]
